FAERS Safety Report 17675109 (Version 1)
Quarter: 2020Q2

REPORT INFORMATION
  Report Type: Spontaneous
  Country: US (occurrence: US)
  Receive Date: 20200415
  Receipt Date: 20200415
  Transmission Date: 20200714
  Serious: Yes (Life-Threatening, Hospitalization)
  Sender: FDA-Public Use
  Company Number: None

PATIENT
  Age: 71 Year
  Sex: Male

DRUGS (1)
  1. DRONABINOL (DRONABINOL 2.5MG CAP) [Suspect]
     Active Substance: DRONABINOL
     Indication: TARDIVE DYSKINESIA
     Route: 048
     Dates: start: 20150930

REACTIONS (4)
  - Hallucination [None]
  - Therapy interrupted [None]
  - Confusional state [None]
  - Psychotic disorder [None]

NARRATIVE: CASE EVENT DATE: 20191107
